FAERS Safety Report 16586337 (Version 1)
Quarter: 2019Q3

REPORT INFORMATION
  Report Type: Spontaneous
  Country: FR (occurrence: FR)
  Receive Date: 20190717
  Receipt Date: 20190717
  Transmission Date: 20191004
  Serious: Yes (Hospitalization)
  Sender: FDA-Public Use
  Company Number: FR-TEVA-2019-FR-1077402

PATIENT
  Age: 64 Year
  Sex: Female
  Weight: 57 kg

DRUGS (8)
  1. VOLTARENE EMULGEL 1 %, GEL [Concomitant]
     Active Substance: DICLOFENAC DIETHYLAMINE
     Route: 003
     Dates: end: 20190523
  2. PARACETAMOL [Concomitant]
     Active Substance: ACETAMINOPHEN
     Route: 048
  3. FOSAVANCE, COMPRIME [Concomitant]
     Route: 048
     Dates: end: 20190523
  4. VANCOMYCINE [Suspect]
     Active Substance: VANCOMYCIN
     Indication: BACTERIAL INFECTION
     Dosage: 2 GRAM
     Route: 042
     Dates: start: 20190524, end: 20190525
  5. GENTAMICINE [Suspect]
     Active Substance: GENTAMICIN
     Indication: BACTERIAL INFECTION
     Dosage: 300MG
     Route: 042
     Dates: start: 20190524, end: 20190524
  6. TAZOCILLINE 4 G/500 MG, POUDRE POUR SOLUTION POUR PERFUSION [Suspect]
     Active Substance: PIPERACILLIN SODIUM\TAZOBACTAM SODIUM
     Indication: BACTERIAL INFECTION
     Dosage: 3 DOSAGE FORMS
     Route: 042
     Dates: start: 20190524, end: 20190529
  7. TOVIAZ [Concomitant]
     Active Substance: FESOTERODINE FUMARATE
     Route: 048
     Dates: end: 20190523
  8. TANAKAN 40 MG, COMPRIME ENROBE [Concomitant]
     Route: 048
     Dates: end: 20190523

REACTIONS (2)
  - Renal tubular necrosis [Recovered/Resolved]
  - Acute kidney injury [Recovered/Resolved]

NARRATIVE: CASE EVENT DATE: 20190524
